FAERS Safety Report 7676547-1 (Version None)
Quarter: 2011Q3

REPORT INFORMATION
  Report Type: 
  Country: None (occurrence: None)
  Receive Date: 20110811
  Receipt Date: 20110803
  Transmission Date: 20111222
  Serious: Yes (Other)
  Sender: FDA-Public Use
  Company Number: US-RANBAXY-2010RR-40363

PATIENT
  Sex: Male

DRUGS (3)
  1. CIPROFLOXACIN [Suspect]
     Indication: PRODUCT USED FOR UNKNOWN INDICATION
  2. LEVAQUIN [Suspect]
     Indication: DIVERTICULITIS
     Dosage: UNK
     Route: 048
     Dates: start: 20080512
  3. LEVAQUIN [Suspect]
     Indication: SINUSITIS

REACTIONS (5)
  - NEURALGIA [None]
  - MUSCLE RUPTURE [None]
  - HEART RATE IRREGULAR [None]
  - TENDONITIS [None]
  - PERIPHERAL SENSORY NEUROPATHY [None]
